FAERS Safety Report 12683040 (Version 1)
Quarter: 2016Q3

REPORT INFORMATION
  Report Type: Spontaneous
  Country: US (occurrence: None)
  Receive Date: 20160824
  Receipt Date: 20160824
  Transmission Date: 20161109
  Serious: No
  Sender: FDA-Public Use
  Company Number: None

PATIENT
  Sex: Female

DRUGS (1)
  1. VENLAFAXINE HCL [Suspect]
     Active Substance: VENLAFAXINE HYDROCHLORIDE

REACTIONS (8)
  - Diarrhoea [None]
  - Nausea [None]
  - Chills [None]
  - Incorrect dose administered [None]
  - Dizziness [None]
  - Headache [None]
  - Drug dispensing error [None]
  - Fatigue [None]

NARRATIVE: CASE EVENT DATE: 2016
